FAERS Safety Report 17806555 (Version 1)
Quarter: 2020Q2

REPORT INFORMATION
  Report Type: Spontaneous
  Country: US (occurrence: US)
  Receive Date: 20200520
  Receipt Date: 20200520
  Transmission Date: 20200714
  Serious: Yes (Other)
  Sender: FDA-Public Use
  Company Number: US-ASTRAZENECA-2020SE65033

PATIENT
  Age: 754 Month
  Sex: Male
  Weight: 66.7 kg

DRUGS (5)
  1. MONTELUKAST [Concomitant]
     Active Substance: MONTELUKAST SODIUM
     Indication: ASTHMA
     Dosage: 30.0MG AS REQUIRED
  2. SYMBICORT [Suspect]
     Active Substance: BUDESONIDE\FORMOTEROL FUMARATE DIHYDRATE
     Indication: ASTHMA
     Dosage: 160/4.5 MCG AS NEEDED AS REQUIRED
     Route: 055
     Dates: start: 201910
  3. PREDNISONE. [Concomitant]
     Active Substance: PREDNISONE
     Indication: PNEUMONIA
  4. SYMBICORT [Suspect]
     Active Substance: BUDESONIDE\FORMOTEROL FUMARATE DIHYDRATE
     Indication: ASTHMA
     Dosage: 160/4.5 MCG AS NEEDED AS REQUIRED
     Route: 055
     Dates: start: 20160824
  5. NASONEX [Concomitant]
     Active Substance: MOMETASONE FUROATE
     Indication: ASTHMA
     Dosage: 2 SPRAYS EACH NOSTRIL AS NEEDED, BUT ONLY TAKES 1 SPRAY EACH NOSTRIL AS NEEDED
     Route: 045

REACTIONS (2)
  - Intentional product misuse [Unknown]
  - Pneumonia [Unknown]

NARRATIVE: CASE EVENT DATE: 201910
